FAERS Safety Report 23192130 (Version 1)
Quarter: 2023Q4

REPORT INFORMATION
  Report Type: Spontaneous
  Country: GB (occurrence: GB)
  Receive Date: 20231116
  Receipt Date: 20231116
  Transmission Date: 20240110
  Serious: Yes (Hospitalization)
  Sender: FDA-Public Use
  Company Number: None

PATIENT
  Age: 21 Year

DRUGS (1)
  1. MIRTAZAPINE [Suspect]
     Active Substance: MIRTAZAPINE
     Dosage: OVERDOSE OF MIRTAZAPINE OF 15MLS INSTEAD OF 1ML.
     Dates: start: 20231020, end: 20231020

REACTIONS (4)
  - Medical observation abnormal [Unknown]
  - General physical health deterioration [Unknown]
  - Overdose [Unknown]
  - Malaise [Unknown]
